FAERS Safety Report 19812200 (Version 1)
Quarter: 2021Q3

REPORT INFORMATION
  Report Type: Spontaneous
  Country: RU (occurrence: RU)
  Receive Date: 20210910
  Receipt Date: 20210910
  Transmission Date: 20211014
  Serious: Yes (Other)
  Sender: FDA-Public Use
  Company Number: RU-SUN PHARMACEUTICAL INDUSTRIES LTD-2021R1-309836

PATIENT
  Sex: Male

DRUGS (1)
  1. ALFUPROST MR [Suspect]
     Active Substance: ALFUZOSIN
     Indication: BENIGN PROSTATIC HYPERPLASIA
     Dosage: 10 MILLIGRAM, DAILY
     Route: 065
     Dates: start: 20210601

REACTIONS (1)
  - Retrograde ejaculation [Not Recovered/Not Resolved]
